FAERS Safety Report 10453311 (Version 1)
Quarter: 2014Q3

REPORT INFORMATION
  Report Type: Spontaneous
  Country: CN (occurrence: CN)
  Receive Date: 20140915
  Receipt Date: 20140915
  Transmission Date: 20150326
  Serious: Yes (Hospitalization, Other)
  Sender: FDA-Public Use
  Company Number: PHHY2014CN115081

PATIENT
  Age: 42 Year
  Sex: Female

DRUGS (5)
  1. MYCOPHENOLATE MOFETIL. [Suspect]
     Active Substance: MYCOPHENOLATE MOFETIL
     Dosage: 500 UNK, UNK
  2. METHYLPREDNISOLONE [Concomitant]
     Active Substance: METHYLPREDNISOLONE
     Indication: LUPUS NEPHRITIS
     Dosage: 40 MG, QD
     Route: 048
  3. METHYLPREDNISOLONE [Concomitant]
     Active Substance: METHYLPREDNISOLONE
     Indication: NEUROPSYCHIATRIC LUPUS
     Dosage: 18 MG, UNK
     Route: 048
  4. METHYLPREDNISOLONE [Concomitant]
     Active Substance: METHYLPREDNISOLONE
     Indication: RETINAL VASCULITIS
     Dosage: 80 MG, PER DAY
  5. MYCOPHENOLATE MOFETIL. [Suspect]
     Active Substance: MYCOPHENOLATE MOFETIL
     Indication: LUPUS NEPHRITIS
     Dosage: 750 MG, BID

REACTIONS (19)
  - Macular oedema [Not Recovered/Not Resolved]
  - Speech disorder [Recovering/Resolving]
  - Herpes simplex encephalitis [Recovering/Resolving]
  - Retinal haemorrhage [Not Recovered/Not Resolved]
  - Visual impairment [Not Recovered/Not Resolved]
  - Pyrexia [Recovering/Resolving]
  - Lethargy [Recovering/Resolving]
  - Visual acuity reduced [Not Recovered/Not Resolved]
  - Disorientation [Recovering/Resolving]
  - Slow response to stimuli [Recovering/Resolving]
  - Memory impairment [Recovering/Resolving]
  - Generalised tonic-clonic seizure [Recovering/Resolving]
  - Retinal ischaemia [Not Recovered/Not Resolved]
  - Cytomegalovirus test positive [Not Recovered/Not Resolved]
  - Retinal artery occlusion [Not Recovered/Not Resolved]
  - Herpes zoster [Recovering/Resolving]
  - Necrotising retinitis [Not Recovered/Not Resolved]
  - Eye pain [Not Recovered/Not Resolved]
  - Retinal vasculitis [Not Recovered/Not Resolved]
